FAERS Safety Report 5430984-4 (Version None)
Quarter: 2007Q3

REPORT INFORMATION
  Report Type: 
  Country: None (occurrence: None)
  Receive Date: 20070830
  Receipt Date: 20070801
  Transmission Date: 20080115
  Serious: Yes (Hospitalization)
  Sender: FDA-Public Use
  Company Number: B0429900A

PATIENT
  Age: 94 Year
  Sex: Female

DRUGS (17)
  1. ARIXTRA [Suspect]
     Indication: DEEP VEIN THROMBOSIS
     Dosage: 5MG PER DAY
     Route: 058
     Dates: start: 20060522, end: 20060530
  2. DI ANTALVIC [Concomitant]
  3. EQUANIL [Concomitant]
  4. CEFAPEROS [Concomitant]
  5. PERINDOPRIL ERBUMINE [Concomitant]
  6. BRONCHOKOD [Concomitant]
  7. FORLAX [Concomitant]
  8. HALDOL [Concomitant]
  9. KARDEGIC [Concomitant]
  10. LASIX [Concomitant]
  11. LECTIL [Concomitant]
  12. NOCTAMIDE [Concomitant]
  13. NITRODERM [Concomitant]
  14. RYTHMOL [Concomitant]
  15. QUININE [Concomitant]
  16. XALATAN [Concomitant]
  17. SPIRIVA [Concomitant]

REACTIONS (5)
  - ANAEMIA [None]
  - FALL [None]
  - HAEMATOMA [None]
  - OEDEMA PERIPHERAL [None]
  - PAIN IN EXTREMITY [None]
